FAERS Safety Report 16364419 (Version 1)
Quarter: 2019Q2

REPORT INFORMATION
  Report Type: Spontaneous
  Country: BR (occurrence: BR)
  Receive Date: 20190528
  Receipt Date: 20190528
  Transmission Date: 20190711
  Serious: Yes (Other)
  Sender: FDA-Public Use
  Company Number: BR-009507513-1905BRA009038

PATIENT
  Age: 31 Year
  Sex: Male
  Weight: 85 kg

DRUGS (13)
  1. CALCIUM DURA VIT D3 TABLETS [Concomitant]
     Indication: OSTEOPENIA
     Dosage: 2 DF, QD
     Route: 065
     Dates: start: 20161004
  2. ALENDRONATE SODIUM. [Concomitant]
     Active Substance: ALENDRONATE SODIUM
     Indication: OSTEOPOROSIS
     Dosage: 1 DF, QW
     Route: 048
     Dates: start: 20180619
  3. ASPIRIN. [Concomitant]
     Active Substance: ASPIRIN
     Indication: CEREBROVASCULAR ACCIDENT
     Dosage: 1 DF, QD
     Dates: start: 1991
  4. FOLIC ACID. [Concomitant]
     Active Substance: FOLIC ACID
     Indication: SICKLE CELL ANAEMIA
     Dosage: 1 DF, QW
     Route: 048
     Dates: start: 20160705
  5. FLUOXETINE [Concomitant]
     Active Substance: FLUOXETINE HYDROCHLORIDE
     Indication: ANXIETY
  6. FINASTERIDE. [Suspect]
     Active Substance: FINASTERIDE
     Indication: PRIAPISM
     Dosage: 1 DF, QD
     Route: 048
     Dates: start: 2014, end: 20180717
  7. EFORTIL [Suspect]
     Active Substance: ETILEFRINE HYDROCHLORIDE
     Indication: PRODUCT USED FOR UNKNOWN INDICATION
     Dosage: UNK
     Route: 065
  8. FLUOXETINE [Concomitant]
     Active Substance: FLUOXETINE HYDROCHLORIDE
     Indication: DEPRESSION
     Dosage: 1 DF, QD
     Route: 048
     Dates: start: 20180619
  9. OMEPRAZOLE. [Concomitant]
     Active Substance: OMEPRAZOLE
     Indication: ABDOMINAL PAIN UPPER
     Dosage: 1 DF, QD
     Route: 048
     Dates: start: 20160205
  10. TADALAFIL. [Suspect]
     Active Substance: TADALAFIL
     Indication: PRIAPISM
     Dosage: 1 DF, QD
     Route: 048
     Dates: start: 20180522, end: 20180724
  11. HYDROXYUREA. [Concomitant]
     Active Substance: HYDROXYUREA
     Indication: PRODUCT USED FOR UNKNOWN INDICATION
     Dosage: UNK
     Route: 065
  12. METFORMIN [Concomitant]
     Active Substance: METFORMIN HYDROCHLORIDE
     Indication: TYPE 2 DIABETES MELLITUS
     Dosage: 2 DF, QD
     Route: 048
     Dates: start: 20160405
  13. AMLODIPINE [Suspect]
     Active Substance: AMLODIPINE BESYLATE
     Indication: PRIAPISM
     Dosage: 2.5 MG, QD
     Route: 048
     Dates: start: 20160105, end: 20180717

REACTIONS (5)
  - Anxiety [Recovering/Resolving]
  - Drug ineffective [Unknown]
  - Depression [Recovering/Resolving]
  - Quality of life decreased [Unknown]
  - Erectile dysfunction [Recovered/Resolved]

NARRATIVE: CASE EVENT DATE: 2014
